FAERS Safety Report 9472278 (Version 1)
Quarter: 2013Q3

REPORT INFORMATION
  Report Type: Spontaneous
  Country: US (occurrence: None)
  Receive Date: 20130821
  Receipt Date: 20130821
  Transmission Date: 20140515
  Serious: No
  Sender: FDA-Public Use
  Company Number: None

PATIENT
  Sex: 0

DRUGS (2)
  1. NYSTATIN NYSTATIN [Suspect]
     Dosage: SUSPENSION, ORAL, UNIT DOSE CUP 5 ML NDC 66689-037-01
     Route: 048
  2. PHENYTOIN [Suspect]
     Dosage: SUSPENSION, ORAL 100 MG/4ML UNIT DOSE CUP 4 ML NDC 66689-036-01
     Route: 048

REACTIONS (2)
  - Medication error [None]
  - Product outer packaging issue [None]
